FAERS Safety Report 24671913 (Version 1)
Quarter: 2024Q4

REPORT INFORMATION
  Report Type: Spontaneous
  Country: CN (occurrence: CN)
  Receive Date: 20241127
  Receipt Date: 20241127
  Transmission Date: 20250115
  Serious: Yes (Other)
  Sender: ELI LILLY AND COMPANY
  Company Number: CN-ELI_LILLY_AND_COMPANY-CN202411015983

PATIENT
  Sex: Female

DRUGS (4)
  1. HUMALOG MIX50/50 [Suspect]
     Active Substance: INSULIN LISPRO
     Indication: Diabetes mellitus
     Dosage: 23 IN THE MORNING, SOMETIMES 12 AND SOMETIMES 13 AT NOON, 25 IN THE EVENING AND 15 AT BEDTIME
     Route: 058
     Dates: start: 2010
  2. HUMALOG MIX50/50 [Suspect]
     Active Substance: INSULIN LISPRO
     Dosage: 16 U, BID
     Route: 058
     Dates: start: 2010
  3. GLUCOPHAGE [Concomitant]
     Active Substance: METFORMIN HYDROCHLORIDE
     Indication: Product used for unknown indication
  4. METFORMIN [Concomitant]
     Active Substance: METFORMIN HYDROCHLORIDE
     Indication: Product used for unknown indication

REACTIONS (6)
  - Cardiac disorder [Unknown]
  - Weight decreased [Unknown]
  - Injection site pain [Unknown]
  - Injection site induration [Unknown]
  - Wrong schedule [Unknown]
  - Product dose omission issue [Unknown]
